FAERS Safety Report 9575237 (Version 9)
Quarter: 2015Q1

REPORT INFORMATION
  Report Type: Spontaneous
  Country: US (occurrence: US)
  Receive Date: 20131001
  Receipt Date: 20150126
  Transmission Date: 20150721
  Serious: Yes (Hospitalization, Other)
  Sender: FDA-Public Use
  Company Number: US-GLAXOSMITHKLINE-A1043515A

PATIENT
  Sex: Female

DRUGS (10)
  1. FLOLAN [Suspect]
     Active Substance: EPOPROSTENOL SODIUM
     Indication: PULMONARY ARTERIAL HYPERTENSION
     Dosage: DOSE: 11 NG/KG/MIN CONTINUOUSLYCONCENTRATION: 15,000 NG/MLVIAL STRENGTH: 1.5 MGFU:DOSE: 25 NG/K[...]
     Route: 042
     Dates: start: 20130911
  2. FLOLAN [Suspect]
     Active Substance: EPOPROSTENOL SODIUM
     Dosage: 26 UNK, UNK
     Dates: start: 20130911
  3. FLOLAN [Suspect]
     Active Substance: EPOPROSTENOL SODIUM
     Dosage: 25 NG/KG/MIN CONTINUOUS; CONCENTRATION: 30,000 NG/ML; PUMP RATE: 68 ML/ DAY; VIAL STRENGTH: 1.5 MG
     Dates: start: 20130911
  4. SILDENAFIL. [Concomitant]
     Active Substance: SILDENAFIL
  5. FLOLAN [Suspect]
     Active Substance: EPOPROSTENOL SODIUM
     Dosage: UNK
     Dates: start: 20130911
  6. FLOLAN [Suspect]
     Active Substance: EPOPROSTENOL SODIUM
     Dosage: UNK
     Dates: start: 20130911
  7. FLOLAN [Suspect]
     Active Substance: EPOPROSTENOL SODIUM
     Dosage: 25 NG/KG/MIN CONTINUOUS; CONCENTRATION: 30,000 NG/ML; PUMP RATE: 68 ML/ DAY; VIAL STRENGTH: 1.5 MG
     Dates: start: 20130911
  8. NON-MEDICATED DRESSINGS NOS [Suspect]
     Active Substance: UNSPECIFIED INGREDIENT
     Indication: PRODUCT USED FOR UNKNOWN INDICATION
     Route: 065
  9. LETAIRIS [Concomitant]
     Active Substance: AMBRISENTAN
  10. REVATIO [Concomitant]
     Active Substance: SILDENAFIL CITRATE

REACTIONS (9)
  - Hypotension [Unknown]
  - Pruritus [Unknown]
  - Dyspnoea [Unknown]
  - Erythema [Unknown]
  - Back pain [Unknown]
  - Pneumonia [Unknown]
  - Cough [Not Recovered/Not Resolved]
  - White blood cell count decreased [Unknown]
  - Hospitalisation [Unknown]
